FAERS Safety Report 22821864 (Version 4)
Quarter: 2023Q4

REPORT INFORMATION
  Report Type: Report from Study
  Country: IL (occurrence: IL)
  Receive Date: 20230814
  Receipt Date: 20231109
  Transmission Date: 20240109
  Serious: Yes (Death, Hospitalization, Other)
  Sender: FDA-Public Use
  Company Number: IL-TAKEDA-2023TUS079318

PATIENT
  Age: 46 Year
  Sex: Female

DRUGS (15)
  1. VELAGLUCERASE ALFA [Suspect]
     Active Substance: VELAGLUCERASE ALFA
     Indication: Gaucher^s disease
     Dosage: 60 INTERNATIONAL UNIT/KILOGRAM, Q2WEEKS
     Route: 065
     Dates: start: 20080224, end: 20110303
  2. VELAGLUCERASE ALFA [Suspect]
     Active Substance: VELAGLUCERASE ALFA
     Dosage: 15 INTERNATIONAL UNIT/KILOGRAM
     Route: 065
     Dates: start: 201103
  3. FLUOXETINE HYDROCHLORIDE [Concomitant]
     Active Substance: FLUOXETINE HYDROCHLORIDE
     Indication: Obsessive-compulsive disorder
     Dosage: UNK
     Route: 048
     Dates: start: 2013, end: 202307
  4. Fusid [Concomitant]
     Dosage: 20 MILLIGRAM, QD
     Route: 048
     Dates: start: 202308, end: 20230909
  5. ALDACTONE [Concomitant]
     Active Substance: SPIRONOLACTONE
     Dosage: 50 MILLIGRAM, QD
     Route: 048
     Dates: start: 202308, end: 20230909
  6. PIPERACILLIN SODIUM\TAZOBACTAM SODIUM [Concomitant]
     Active Substance: PIPERACILLIN SODIUM\TAZOBACTAM SODIUM
     Indication: Febrile neutropenia
     Dosage: UNK UNK, QD
     Route: 042
     Dates: start: 202308, end: 202309
  7. NEUPOGEN [Concomitant]
     Active Substance: FILGRASTIM
     Indication: Febrile neutropenia
     Dosage: 30 MICROGRAM, QD
     Route: 058
     Dates: start: 202308, end: 202309
  8. METAMIZOLE [Concomitant]
     Active Substance: METAMIZOLE
     Dosage: UNK
     Route: 048
     Dates: start: 202308, end: 202309
  9. MORPHINE [Concomitant]
     Active Substance: MORPHINE
     Indication: Pain
     Dosage: UNK
     Route: 048
     Dates: start: 202308, end: 20230909
  10. NYSTATIN [Concomitant]
     Active Substance: NYSTATIN
     Indication: Mucosal inflammation
     Dosage: UNK UNK, QD
     Dates: start: 202308, end: 20230909
  11. SOLU-MEDROL [Concomitant]
     Active Substance: METHYLPREDNISOLONE SODIUM SUCCINATE
     Indication: Hepatic failure
     Dosage: UNK
     Route: 042
     Dates: start: 202308, end: 20230909
  12. VITAMIN K [Concomitant]
     Active Substance: PHYTONADIONE
     Indication: Angiosarcoma
     Dosage: UNK
     Dates: start: 202308, end: 20230909
  13. URSOLIT [Concomitant]
     Indication: Angiosarcoma
     Dosage: UNK
     Dates: start: 202308, end: 20230909
  14. TAXOL [Concomitant]
     Active Substance: PACLITAXEL
     Indication: Angiosarcoma
     Dosage: UNK
     Route: 042
     Dates: start: 20230823, end: 20230823
  15. PEMBROLIZUMAB [Concomitant]
     Active Substance: PEMBROLIZUMAB
     Indication: Angiosarcoma
     Dosage: UNK UNK, Q3WEEKS
     Route: 042
     Dates: start: 20230829, end: 20230909

REACTIONS (2)
  - Febrile neutropenia [Fatal]
  - Hepatic angiosarcoma [Recovered/Resolved]

NARRATIVE: CASE EVENT DATE: 20230809
